FAERS Safety Report 7320574-0 (Version None)
Quarter: 2011Q1

REPORT INFORMATION
  Report Type: 
  Country: None (occurrence: None)
  Receive Date: 20110228
  Receipt Date: 20110218
  Transmission Date: 20110831
  Serious: Yes (Hospitalization)
  Sender: FDA-Public Use
  Company Number: JP-PFIZER INC-2011034734

PATIENT
  Age: 59 Year
  Sex: Male

DRUGS (8)
  1. LYRICA [Suspect]
     Indication: NEURALGIA
     Dosage: 300 MG DAILY
     Route: 048
     Dates: start: 20110101, end: 20110215
  2. MAGNESIUM OXIDE [Concomitant]
     Dosage: 750 MG, A DAY
     Route: 048
  3. DEPAS [Concomitant]
     Dosage: 0.5 MG, A DAY
     Route: 048
  4. LOXONIN [Concomitant]
     Dosage: 180 MG, A DAY
     Route: 048
  5. MYSLEE [Concomitant]
     Dosage: 5 MG, A DAY
     Route: 048
  6. MUCOSTA [Concomitant]
     Dosage: 300 MG, A DAY
     Route: 048
  7. BACLOFEN [Concomitant]
     Dosage: 30 MG, A DAY
     Route: 048
  8. METHYCOBAL [Concomitant]
     Dosage: 1500 UG, A DAY
     Route: 048

REACTIONS (2)
  - BLOOD PRESSURE DECREASED [None]
  - DISSEMINATED INTRAVASCULAR COAGULATION [None]
